FAERS Safety Report 9435893 (Version 2)
Quarter: 2014Q1

REPORT INFORMATION
  Report Type: Report from Study
  Country: FR (occurrence: FR)
  Receive Date: 20130801
  Receipt Date: 20140226
  Transmission Date: 20141002
  Serious: Yes (Hospitalization)
  Sender: FDA-Public Use
  Company Number: FR-ROCHE-1255559

PATIENT
  Sex: Female
  Weight: 92 kg

DRUGS (2)
  1. PEG-INTERFERON ALFA 2A [Suspect]
     Indication: HEPATITIS B
     Route: 065
     Dates: end: 201201
  2. TENOFOVIR [Suspect]
     Indication: HEPATITIS B
     Route: 065
     Dates: start: 20120811

REACTIONS (1)
  - Rotator cuff syndrome [Recovered/Resolved]
